FAERS Safety Report 5922041-5 (Version None)
Quarter: 2008Q4

REPORT INFORMATION
  Report Type: 
  Country: None (occurrence: None)
  Receive Date: 20081017
  Receipt Date: 20081010
  Transmission Date: 20090506
  Serious: Yes (Hospitalization)
  Sender: FDA-Public Use
  Company Number: A0752415A

PATIENT
  Age: 63 Year
  Sex: Female
  Weight: 200 kg

DRUGS (2)
  1. AVANDIA [Suspect]
     Indication: DIABETES MELLITUS
     Dosage: 4MG TWICE PER DAY
     Route: 048
     Dates: start: 19970101, end: 20070326
  2. GLUCOTROL XL [Concomitant]

REACTIONS (1)
  - MYOCARDIAL INFARCTION [None]
